FAERS Safety Report 15388049 (Version 5)
Quarter: 2024Q2

REPORT INFORMATION
  Report Type: Spontaneous
  Country: PL (occurrence: PL)
  Receive Date: 20180915
  Receipt Date: 20240514
  Transmission Date: 20240716
  Serious: Yes (Hospitalization)
  Sender: FDA-Public Use
  Company Number: PL-AUROBINDO-AUR-APL-2018-045797

PATIENT
  Age: 10 Year
  Sex: Female

DRUGS (9)
  1. AZITHROMYCIN [Suspect]
     Active Substance: AZITHROMYCIN
     Indication: Acute haemorrhagic oedema of infancy
     Dosage: UNK
     Route: 048
     Dates: start: 201512
  2. HYDROCORTISONE [Suspect]
     Active Substance: HYDROCORTISONE
     Indication: Acute haemorrhagic oedema of infancy
     Dosage: UNK
     Route: 061
     Dates: start: 201512
  3. BETAMETHASONE DIPROPIONATE\CLOTRIMAZOLE [Suspect]
     Active Substance: BETAMETHASONE DIPROPIONATE\CLOTRIMAZOLE
     Indication: Acute haemorrhagic oedema of infancy
     Dosage: UNK
     Route: 061
     Dates: start: 201512
  4. BETAMETHASONE DIPROPIONATE [Suspect]
     Active Substance: BETAMETHASONE DIPROPIONATE
     Indication: Acute haemorrhagic oedema of infancy
     Dosage: UNK
     Route: 061
     Dates: start: 201512
  5. BETAMETHASONE DIPROPIONATE\GENTAMICIN SULFATE [Suspect]
     Active Substance: BETAMETHASONE DIPROPIONATE\GENTAMICIN SULFATE
     Indication: Acute haemorrhagic oedema of infancy
     Dosage: UNK
     Route: 061
     Dates: start: 201512
  6. BETAMETHASONE DIPROPIONATE\CLOTRIMAZOLE\GENTAMICIN SULFATE [Suspect]
     Active Substance: BETAMETHASONE DIPROPIONATE\CLOTRIMAZOLE\GENTAMICIN SULFATE
     Indication: Acute haemorrhagic oedema of infancy
     Dosage: UNK
     Route: 061
     Dates: start: 201512
  7. CLOTRIMAZOLE [Suspect]
     Active Substance: CLOTRIMAZOLE
     Indication: Acute haemorrhagic oedema of infancy
     Dosage: UNK
     Route: 065
  8. GENTAMICIN [Suspect]
     Active Substance: GENTAMICIN
     Indication: Acute haemorrhagic oedema of infancy
     Dosage: UNK
     Route: 061
     Dates: start: 201512
  9. SODIUM CHLORIDE [Concomitant]
     Active Substance: SODIUM CHLORIDE
     Indication: Viral upper respiratory tract infection
     Dosage: UNK
     Route: 065

REACTIONS (1)
  - Drug ineffective [Unknown]

NARRATIVE: CASE EVENT DATE: 20151201
